FAERS Safety Report 5368998-5 (Version None)
Quarter: 2007Q2

REPORT INFORMATION
  Report Type: 
  Country: None (occurrence: None)
  Receive Date: 20070621
  Receipt Date: 20070621
  Transmission Date: 20071010
  Serious: Yes (Life-Threatening, Hospitalization)
  Sender: FDA-Public Use
  Company Number: None

PATIENT
  Age: 52 Year
  Sex: Female
  Weight: 59 kg

DRUGS (1)
  1. ALBUMINAR-5 [Suspect]
     Indication: MULTIPLE SCLEROSIS
     Dosage: 75GM/1500ML AS DIRECTED  IV DRIP
     Route: 041

REACTIONS (5)
  - BURNING SENSATION [None]
  - CARDIO-RESPIRATORY ARREST [None]
  - CONVULSION [None]
  - HYPOAESTHESIA [None]
  - INFUSION RELATED REACTION [None]
